FAERS Safety Report 7716012-6 (Version None)
Quarter: 2011Q3

REPORT INFORMATION
  Report Type: 
  Country: None (occurrence: None)
  Receive Date: 20110812
  Receipt Date: 20110516
  Transmission Date: 20111222
  Serious: Yes (Hospitalization)
  Sender: FDA-Public Use
  Company Number: MEDI-0012802

PATIENT
  Age: 6 Month
  Sex: Female
  Weight: 4.77 kg

DRUGS (9)
  1. POLYCTIRIC [Concomitant]
  2. SYNAGIS [Suspect]
     Indication: RESPIRATORY SYNCYTIAL VIRUS INFECTION
     Dosage: 15 MG/KG, ONCE A MONTH, SUBCUTANEOUS ; 15 MG/KG, ONCE A MONTH, SUBCUTANEOUS
     Route: 058
     Dates: start: 20110128, end: 20110128
  3. SYNAGIS [Suspect]
     Indication: ANTIVIRAL PROPHYLAXIS
     Dosage: 15 MG/KG, ONCE A MONTH, SUBCUTANEOUS ; 15 MG/KG, ONCE A MONTH, SUBCUTANEOUS
     Route: 058
     Dates: start: 20110128, end: 20110128
  4. SYNAGIS [Suspect]
     Indication: RESPIRATORY SYNCYTIAL VIRUS INFECTION
     Dosage: 15 MG/KG, ONCE A MONTH, SUBCUTANEOUS ; 15 MG/KG, ONCE A MONTH, SUBCUTANEOUS
     Route: 058
     Dates: start: 20101117, end: 20101220
  5. SYNAGIS [Suspect]
     Indication: ANTIVIRAL PROPHYLAXIS
     Dosage: 15 MG/KG, ONCE A MONTH, SUBCUTANEOUS ; 15 MG/KG, ONCE A MONTH, SUBCUTANEOUS
     Route: 058
     Dates: start: 20101117, end: 20101220
  6. URSODIOL [Concomitant]
  7. POLY-VI-SOL WITH IRON (FERROUS SULFATE, VITAMINS NOS) [Concomitant]
  8. TRIBASIC (CALCIUM PHOSPHATE) [Concomitant]
  9. VITAMIN D [Concomitant]

REACTIONS (2)
  - PNEUMONIA RESPIRATORY SYNCYTIAL VIRAL [None]
  - RESPIRATORY SYNCYTIAL VIRUS INFECTION [None]
